FAERS Safety Report 4394961-7 (Version None)
Quarter: 2004Q3

REPORT INFORMATION
  Report Type: 
  Country: None (occurrence: None)
  Receive Date: 20040712
  Receipt Date: 20040705
  Transmission Date: 20050211
  Serious: Yes (Hospitalization, Disabling)
  Sender: FDA-Public Use
  Company Number: DE-GLAXOSMITHKLINE-D0044100A

PATIENT
  Age: 27 Year
  Sex: Male
  Weight: 58 kg

DRUGS (3)
  1. FORTUM [Suspect]
     Dosage: 4G TWICE PER DAY
     Route: 042
     Dates: start: 20040405, end: 20040413
  2. COLISTIN SULFATE [Concomitant]
     Dosage: 2IU6 TWICE PER DAY
     Route: 042
     Dates: start: 20040405, end: 20040424
  3. MULTIPLE DRUG THERAPY [Concomitant]
     Route: 065

REACTIONS (4)
  - ABASIA [None]
  - ARTHRALGIA [None]
  - OXYGEN SATURATION DECREASED [None]
  - PYREXIA [None]
